FAERS Safety Report 4938568-9 (Version None)
Quarter: 2006Q1

REPORT INFORMATION
  Report Type: 
  Country: None (occurrence: None)
  Receive Date: 20060306
  Receipt Date: 20060217
  Transmission Date: 20060701
  Serious: Yes (Hospitalization, Other)
  Sender: FDA-Public Use
  Company Number: US200602004056

PATIENT
  Age: 38 Year
  Sex: Female

DRUGS (7)
  1. CYMBALTA [Suspect]
     Indication: DEPRESSION
     Dosage: SEE IMAGE
     Dates: end: 20060201
  2. CYMBALTA [Suspect]
     Indication: DEPRESSION
     Dosage: SEE IMAGE
     Dates: start: 20060201
  3. INDERAL LA [Concomitant]
  4. TRAZODONE HCL [Concomitant]
  5. ABILITY   /USA/ (ARIPIPRAZOLE) [Concomitant]
  6. AMBIEN [Concomitant]
  7. WELLBUTRIN [Concomitant]

REACTIONS (4)
  - DEPRESSION [None]
  - DRUG INEFFECTIVE [None]
  - MEDICATION RESIDUE [None]
  - SUICIDE ATTEMPT [None]
